FAERS Safety Report 9991612 (Version 1)
Quarter: 2014Q1

REPORT INFORMATION
  Report Type: Spontaneous
  Country: US (occurrence: US)
  Receive Date: 20140310
  Receipt Date: 20140310
  Transmission Date: 20141002
  Serious: No
  Sender: FDA-Public Use
  Company Number: US-TEVA-467857USA

PATIENT
  Age: 27 Year
  Sex: Female
  Weight: 59.47 kg

DRUGS (2)
  1. PLAN B ONE-STEP [Suspect]
     Indication: POST COITAL CONTRACEPTION
     Dosage: 1.5 MILLIGRAM DAILY;
     Route: 048
     Dates: start: 20140222, end: 20140222
  2. VITAMINS [Concomitant]
     Indication: BREAST FEEDING

REACTIONS (1)
  - Exposure during breast feeding [Unknown]
